FAERS Safety Report 9782271 (Version 1)
Quarter: 2013Q4

REPORT INFORMATION
  Report Type: Report from Study
  Country: CA (occurrence: CA)
  Receive Date: 20131226
  Receipt Date: 20131226
  Transmission Date: 20140711
  Serious: Yes (Other)
  Sender: FDA-Public Use
  Company Number: CA-JNJFOC-20131213373

PATIENT
  Sex: Male
  Weight: 95 kg

DRUGS (3)
  1. REMICADE [Suspect]
     Indication: CROHN^S DISEASE
     Route: 042
     Dates: start: 2002
  2. CIPRO [Concomitant]
     Route: 065
  3. FLAGYL [Concomitant]
     Route: 065

REACTIONS (2)
  - Fistula [Unknown]
  - Intestinal obstruction [Unknown]
